FAERS Safety Report 18870390 (Version 2)
Quarter: 2021Q1

REPORT INFORMATION
  Report Type: Spontaneous
  Country: TH (occurrence: TH)
  Receive Date: 20210210
  Receipt Date: 20210313
  Transmission Date: 20210420
  Serious: Yes (Other)
  Sender: FDA-Public Use
  Company Number: TH-LUPIN PHARMACEUTICALS INC.-2021-01669

PATIENT
  Age: 40 Year
  Sex: Female

DRUGS (8)
  1. TELAVANCIN [Suspect]
     Active Substance: TELAVANCIN
     Indication: PYELONEPHRITIS
  2. VANCOMYCIN [Suspect]
     Active Substance: VANCOMYCIN
     Indication: PYELONEPHRITIS
  3. TEICOPLANIN [Suspect]
     Active Substance: TEICOPLANIN
     Indication: PYELONEPHRITIS
  4. TELAVANCIN [Suspect]
     Active Substance: TELAVANCIN
     Indication: ENTEROCOCCAL INFECTION
     Dosage: UNK
     Route: 065
  5. VANCOMYCIN [Suspect]
     Active Substance: VANCOMYCIN
     Indication: ENTEROCOCCAL INFECTION
     Dosage: UNK
     Route: 065
  6. CEFTRIAXONE. [Suspect]
     Active Substance: CEFTRIAXONE
     Indication: ENTEROCOCCAL INFECTION
     Dosage: UNK
     Route: 065
  7. CEFTRIAXONE. [Suspect]
     Active Substance: CEFTRIAXONE
     Indication: PYELONEPHRITIS
  8. TEICOPLANIN [Suspect]
     Active Substance: TEICOPLANIN
     Indication: ENTEROCOCCAL INFECTION
     Dosage: UNK
     Route: 065

REACTIONS (3)
  - Exposure during pregnancy [Unknown]
  - Drug reaction with eosinophilia and systemic symptoms [Unknown]
  - Therapeutic product cross-reactivity [Unknown]
